FAERS Safety Report 13151695 (Version 1)
Quarter: 2017Q1

REPORT INFORMATION
  Report Type: Report from Study
  Country: None (occurrence: US)
  Receive Date: 20170125
  Receipt Date: 20170125
  Transmission Date: 20170428
  Serious: Yes (Other)
  Sender: FDA-Public Use
  Company Number: US-ABBVIE-17K-163-1843475-00

PATIENT
  Age: 50 Year
  Sex: Male

DRUGS (2)
  1. INDOMETHACIN. [Concomitant]
     Active Substance: INDOMETHACIN
     Indication: RHEUMATOID ARTHRITIS
     Dosage: AS REQUIRED
  2. HUMIRA [Suspect]
     Active Substance: ADALIMUMAB
     Indication: RHEUMATOID ARTHRITIS
     Route: 058
     Dates: start: 201606, end: 20160728

REACTIONS (6)
  - Road traffic accident [Recovering/Resolving]
  - Rheumatoid arthritis [Recovering/Resolving]
  - Meniscus injury [Recovering/Resolving]
  - Post procedural swelling [Recovering/Resolving]
  - Procedural pain [Recovering/Resolving]
  - Ligament rupture [Recovering/Resolving]

NARRATIVE: CASE EVENT DATE: 201607
